FAERS Safety Report 17526330 (Version 1)
Quarter: 2020Q1

REPORT INFORMATION
  Report Type: Spontaneous
  Country: BG (occurrence: BG)
  Receive Date: 20200311
  Receipt Date: 20200311
  Transmission Date: 20200409
  Serious: Yes (Hospitalization)
  Sender: FDA-Public Use
  Company Number: BG-MYLANLABS-2020M1025243

PATIENT
  Age: 50 Year
  Sex: Male

DRUGS (15)
  1. VECTIBIX [Concomitant]
     Active Substance: PANITUMUMAB
     Dosage: UNK
  2. AVASTIN [Concomitant]
     Active Substance: BEVACIZUMAB
     Dosage: UNK (CONDUCTED 6 CYCLES OF 2ND LINE)
  3. AVASTIN [Concomitant]
     Active Substance: BEVACIZUMAB
     Dosage: UNK (DIRECTED FOR 6 COURSES OF 3RD LINE)
  4. OXALIPLATIN. [Suspect]
     Active Substance: OXALIPLATIN
     Indication: PRODUCT USED FOR UNKNOWN INDICATION
     Dosage: UNK
     Route: 065
  5. CETUXIMAB. [Concomitant]
     Active Substance: CETUXIMAB
     Dosage: UNK
  6. CAPECITABINE. [Concomitant]
     Active Substance: CAPECITABINE
     Dosage: UNK (DIRECTED FOR 6 COURSES OF 3RD LINE)
  7. FOLFIRI [Concomitant]
     Active Substance: FLUOROURACIL\IRINOTECAN\LEUCOVORIN
     Dosage: UNK
  8. AFLIBERCEPT [Suspect]
     Active Substance: AFLIBERCEPT
     Indication: PRODUCT USED FOR UNKNOWN INDICATION
     Dosage: UNK
     Route: 065
  9. CAPEOX [Concomitant]
     Dosage: UNK
  10. FILGRASTIM [Concomitant]
     Active Substance: FILGRASTIM
     Dosage: UNK
  11. FOLFOX-4 [Concomitant]
     Active Substance: FLUOROURACIL\LEUCOVORIN CALCIUM\OXALIPLATIN
     Dosage: UNK (CONDUCTED 6 CYCLES OF 2ND LINE)
  12. CAPECITABINE. [Concomitant]
     Active Substance: CAPECITABINE
     Dosage: UNK
  13. AFLIBERCEPT [Suspect]
     Active Substance: AFLIBERCEPT
     Dosage: UNK
     Route: 065
  14. FOLFOX-4 [Concomitant]
     Active Substance: FLUOROURACIL\LEUCOVORIN CALCIUM\OXALIPLATIN
     Dosage: UNK (PERFORMED 6 COURSES 1ST LINE)
  15. AVASTIN [Concomitant]
     Active Substance: BEVACIZUMAB
     Dosage: UNK (PERFORMED 6 COURSES 1ST LINE)

REACTIONS (3)
  - Jaundice [Unknown]
  - Urticaria [Unknown]
  - Rash [Unknown]
